FAERS Safety Report 25184027 (Version 1)
Quarter: 2025Q2

REPORT INFORMATION
  Report Type: Spontaneous
  Country: FR (occurrence: FR)
  Receive Date: 20250410
  Receipt Date: 20250410
  Transmission Date: 20250716
  Serious: Yes (Hospitalization)
  Sender: PFIZER
  Company Number: None

PATIENT
  Age: 23 Day
  Sex: Female
  Weight: 3.74 kg

DRUGS (1)
  1. PAMIDRONATE DISODIUM [Suspect]
     Active Substance: PAMIDRONATE DISODIUM
     Indication: Hypercalcaemia
     Dosage: 1.87 MG, EVERY 24 HOURS (DAILY)
     Route: 042
     Dates: start: 20250313, end: 20250314

REACTIONS (3)
  - Hyperthermia [Recovered/Resolved]
  - Rash [Recovered/Resolved]
  - Respiratory disorder [Recovering/Resolving]

NARRATIVE: CASE EVENT DATE: 20250314
